FAERS Safety Report 13762313 (Version 2)
Quarter: 2017Q4

REPORT INFORMATION
  Report Type: Report from Study
  Country: US (occurrence: US)
  Receive Date: 20170718
  Receipt Date: 20171211
  Transmission Date: 20180320
  Serious: No
  Sender: FDA-Public Use
  Company Number: PHEH2017US021960

PATIENT
  Sex: Female

DRUGS (3)
  1. ILARIS [Suspect]
     Active Substance: CANAKINUMAB
     Dosage: UNK, EVERY 4 WEEKS
     Route: 065
     Dates: start: 20170602
  2. ILARIS [Suspect]
     Active Substance: CANAKINUMAB
     Dosage: EVERY 6 WEEKS
     Route: 065
     Dates: start: 20171012
  3. ILARIS [Suspect]
     Active Substance: CANAKINUMAB
     Indication: PRODUCT USED FOR UNKNOWN INDICATION
     Dosage: UNK, EVERY 4 WEEKS
     Route: 065

REACTIONS (1)
  - Inappropriate schedule of drug administration [Unknown]
